FAERS Safety Report 6418589-X (Version None)
Quarter: 2009Q4

REPORT INFORMATION
  Report Type: 
  Country: None (occurrence: None)
  Receive Date: 20091028
  Receipt Date: 20091019
  Transmission Date: 20100525
  Serious: Yes (Other)
  Sender: FDA-Public Use
  Company Number: PHHY2009BR45877

PATIENT
  Sex: Female

DRUGS (4)
  1. EXELON [Suspect]
     Indication: DEMENTIA ALZHEIMER'S TYPE
     Dosage: 1 CAPSULE PER DAY
     Route: 048
     Dates: start: 20090401
  2. EXELON [Suspect]
     Dosage: 1.5 MG, QD
     Route: 048
  3. EXELON [Concomitant]
     Dosage: UNK
     Dates: start: 20090701
  4. RIVOTRIL [Concomitant]
     Indication: SLEEP DISORDER
     Dosage: 2 MG, QD
     Route: 048

REACTIONS (4)
  - DIARRHOEA [None]
  - FEELING ABNORMAL [None]
  - NAUSEA [None]
  - VOMITING [None]
